FAERS Safety Report 7504799-7 (Version None)
Quarter: 2011Q2

REPORT INFORMATION
  Report Type: 
  Country: None (occurrence: None)
  Receive Date: 20110525
  Receipt Date: 20101118
  Transmission Date: 20111010
  Serious: No
  Sender: FDA-Public Use
  Company Number: US-AMGEN-USASP2010005751

PATIENT
  Age: 78 Year
  Sex: Male

DRUGS (12)
  1. NEXIUM [Concomitant]
     Dosage: UNK MG, UNK
  2. CELEXA [Concomitant]
     Dosage: 1 UNK, UNK
  3. LIPITOR [Concomitant]
     Dosage: UNK
  4. PROSCAR [Concomitant]
     Dosage: 1 UNK, UNK
  5. HYTRIN [Concomitant]
     Dosage: UNK MG, UNK
  6. ASPIRIN [Concomitant]
     Dosage: 1 UNK, UNK
  7. ARANESP [Suspect]
     Indication: MYELODYSPLASTIC SYNDROME
     Dosage: 200 A?G, Q2WK
     Dates: start: 20100701
  8. COZAAR [Concomitant]
     Dosage: 1 UNK, UNK
  9. MULTI-VITAMINS [Concomitant]
     Dosage: UNK
  10. VITAMIN A [Concomitant]
     Dosage: UNK
  11. PROBIOTICA [Concomitant]
     Dosage: UNK
  12. VIDAZA [Concomitant]
     Dosage: UNK

REACTIONS (2)
  - OEDEMA PERIPHERAL [None]
  - HYPOTHYROIDISM [None]
